FAERS Safety Report 5015770-1 (Version None)
Quarter: 2006Q2

REPORT INFORMATION
  Report Type: 
  Country: None (occurrence: None)
  Receive Date: 20060525
  Receipt Date: 20060516
  Transmission Date: 20061013
  Serious: Yes (Hospitalization, Disabling)
  Sender: FDA-Public Use
  Company Number: 2006AP000335

PATIENT
  Age: 39 Year
  Sex: Male

DRUGS (5)
  1. APO-ALLOPURINOL (ALLOPURINOL) ( 100MG ) [Suspect]
     Indication: DRUG DISPENSING ERROR
     Dosage: 100 MG;QD;PO
     Route: 048
     Dates: start: 20050701, end: 20060301
  2. DIOVAN [Concomitant]
  3. EFFEXOR [Concomitant]
  4. CRESTOR [Concomitant]
  5. SPECTRAL ^AVENTIS^ [Concomitant]

REACTIONS (23)
  - ABASIA [None]
  - ALOPECIA [None]
  - ASTHENIA [None]
  - BACK PAIN [None]
  - CELLULITIS [None]
  - CONTUSION [None]
  - DIARRHOEA [None]
  - DRUG DISPENSING ERROR [None]
  - DYSPEPSIA [None]
  - DYSPNOEA [None]
  - EYE IRRITATION [None]
  - HEADACHE [None]
  - HYPERTENSION [None]
  - HYPOAESTHESIA [None]
  - MUSCLE SPASMS [None]
  - OCULAR HYPERAEMIA [None]
  - PARAESTHESIA [None]
  - PYREXIA [None]
  - SKIN EXFOLIATION [None]
  - SKIN ULCER [None]
  - SOMNOLENCE [None]
  - WHEEZING [None]
  - YELLOW SKIN [None]
